FAERS Safety Report 7710948-8 (Version None)
Quarter: 2011Q3

REPORT INFORMATION
  Report Type: 
  Country: None (occurrence: None)
  Receive Date: 20110825
  Receipt Date: 20110823
  Transmission Date: 20111222
  Serious: Yes (Other)
  Sender: FDA-Public Use
  Company Number: US-MERCK-1108USA02975

PATIENT
  Age: 52 Year
  Sex: Female

DRUGS (2)
  1. CARBIDOPA AND LEVODOPA [Suspect]
     Route: 048
  2. SINEMET CR [Suspect]
     Route: 048

REACTIONS (3)
  - MOOD ALTERED [None]
  - COMA [None]
  - DRUG INEFFECTIVE [None]
